FAERS Safety Report 5919871-2 (Version None)
Quarter: 2008Q4

REPORT INFORMATION
  Report Type: 
  Country: None (occurrence: None)
  Receive Date: 20081015
  Receipt Date: 20081003
  Transmission Date: 20090506
  Serious: Yes (Other)
  Sender: FDA-Public Use
  Company Number: US-PFIZER INC-2008085777

PATIENT
  Sex: Female
  Weight: 91 kg

DRUGS (1)
  1. CHANTIX [Suspect]
     Indication: SMOKING CESSATION THERAPY
     Dates: start: 20080806

REACTIONS (3)
  - AGITATION [None]
  - IRRITABILITY [None]
  - MOOD ALTERED [None]
